FAERS Safety Report 16440433 (Version 1)
Quarter: 2019Q2

REPORT INFORMATION
  Report Type: Spontaneous
  Country: US (occurrence: US)
  Receive Date: 20190617
  Receipt Date: 20190617
  Transmission Date: 20190711
  Serious: No
  Sender: FDA-Public Use
  Company Number: US-BRACCO-2019US00771

PATIENT
  Sex: Male

DRUGS (1)
  1. MULTIHANCE [Suspect]
     Active Substance: GADOBENATE DIMEGLUMINE
     Indication: NUCLEAR MAGNETIC RESONANCE IMAGING
     Dosage: 20 ML, SINGLE
     Dates: start: 20181115, end: 20181115

REACTIONS (6)
  - Arthralgia [Unknown]
  - Paraesthesia [Unknown]
  - Skin discolouration [Unknown]
  - Dysgeusia [Unknown]
  - Skin burning sensation [Unknown]
  - Eye irritation [Unknown]
